FAERS Safety Report 7119668-4 (Version None)
Quarter: 2010Q4

REPORT INFORMATION
  Report Type: 
  Country: None (occurrence: None)
  Receive Date: 20101123
  Receipt Date: 20101115
  Transmission Date: 20110411
  Serious: Yes (Death, Hospitalization)
  Sender: FDA-Public Use
  Company Number: PH-BAXTER-2010BH028375

PATIENT
  Age: 46 Year
  Sex: Female

DRUGS (6)
  1. DIANEAL [Suspect]
     Indication: PERITONEAL DIALYSIS
     Route: 033
     Dates: start: 20080719, end: 20101111
  2. DIANEAL [Suspect]
     Route: 033
     Dates: start: 20080719, end: 20101111
  3. CALCIUM CARBONATE [Concomitant]
  4. FOLIC ACID [Concomitant]
  5. FERROUS SULFATE [Concomitant]
  6. FUROSEMIDE [Concomitant]

REACTIONS (2)
  - CARDIO-RESPIRATORY ARREST [None]
  - DYSPNOEA [None]
